FAERS Safety Report 12806641 (Version 1)
Quarter: 2016Q4

REPORT INFORMATION
  Report Type: Spontaneous
  Country: US (occurrence: US)
  Receive Date: 20161004
  Receipt Date: 20161004
  Transmission Date: 20170207
  Serious: No
  Sender: FDA-Public Use
  Company Number: US-JNJFOC-20160717661

PATIENT
  Sex: Female

DRUGS (4)
  1. SUDAFED NASAL DECONGESTANT MAXIMUM STRENGTH [Suspect]
     Active Substance: PSEUDOEPHEDRINE HYDROCHLORIDE
     Indication: EAR DISCOMFORT
     Dosage: 1 TABLET, HAVE TAKEN A WHOLE ONE IN THE PAST
     Route: 048
     Dates: start: 20160101, end: 2016
  2. SUDAFED NASAL DECONGESTANT MAXIMUM STRENGTH [Suspect]
     Active Substance: PSEUDOEPHEDRINE HYDROCHLORIDE
     Indication: VERTIGO
     Dosage: 1/2 TABLET, 2 OR 3 TIMES A DAY
     Route: 048
     Dates: start: 2016
  3. SUDAFED NASAL DECONGESTANT MAXIMUM STRENGTH [Suspect]
     Active Substance: PSEUDOEPHEDRINE HYDROCHLORIDE
     Indication: EAR DISCOMFORT
     Dosage: 1/2 TABLET, 2 OR 3 TIMES A DAY
     Route: 048
     Dates: start: 2016
  4. SUDAFED NASAL DECONGESTANT MAXIMUM STRENGTH [Suspect]
     Active Substance: PSEUDOEPHEDRINE HYDROCHLORIDE
     Indication: VERTIGO
     Dosage: 1 TABLET, HAVE TAKEN A WHOLE ONE IN THE PAST
     Route: 048
     Dates: start: 20160101, end: 2016

REACTIONS (4)
  - Product use issue [Unknown]
  - Paraesthesia [Unknown]
  - Anxiety [Unknown]
  - Off label use [Unknown]

NARRATIVE: CASE EVENT DATE: 20160101
